FAERS Safety Report 10432217 (Version 1)
Quarter: 2014Q3

REPORT INFORMATION
  Report Type: Spontaneous
  Country: US (occurrence: None)
  Receive Date: 20140903
  Receipt Date: 20140903
  Transmission Date: 20150326
  Serious: Yes (Life-Threatening)
  Sender: FDA-Public Use
  Company Number: None

PATIENT
  Age: 27 Year
  Sex: Female

DRUGS (1)
  1. COPAXONE [Suspect]
     Active Substance: GLATIRAMER ACETATE
     Indication: MULTIPLE SCLEROSIS
     Route: 058

REACTIONS (7)
  - Swelling face [None]
  - Diarrhoea [None]
  - Vomiting [None]
  - Chills [None]
  - Chest pain [None]
  - Skin discolouration [None]
  - Fatigue [None]

NARRATIVE: CASE EVENT DATE: 20140816
